FAERS Safety Report 7658246-5 (Version None)
Quarter: 2011Q3

REPORT INFORMATION
  Report Type: 
  Country: None (occurrence: None)
  Receive Date: 20110803
  Receipt Date: 20110803
  Transmission Date: 20111222
  Serious: Yes (Other)
  Sender: FDA-Public Use
  Company Number: None

PATIENT
  Sex: Female
  Weight: 89.8122 kg

DRUGS (1)
  1. ZOLPIDEM [Suspect]
     Indication: INSOMNIA
     Dosage: 12.5MG QHS PO
     Route: 048
     Dates: start: 20110601, end: 20110701

REACTIONS (2)
  - RASH [None]
  - PRODUCT SUBSTITUTION ISSUE [None]
